FAERS Safety Report 13717073 (Version 1)
Quarter: 2017Q3

REPORT INFORMATION
  Report Type: Spontaneous
  Country: US (occurrence: US)
  Receive Date: 20170704
  Receipt Date: 20170704
  Transmission Date: 20171127
  Serious: Yes (Disabling)
  Sender: FDA-Public Use
  Company Number: None

PATIENT
  Age: 33 Year
  Sex: Male
  Weight: 65.25 kg

DRUGS (3)
  1. CLONAZEPAM. [Suspect]
     Active Substance: CLONAZEPAM
     Indication: ANXIETY
     Dosage: ?          OTHER STRENGTH:MG;QUANTITY:4 TABLET(S);?
     Route: 048
     Dates: start: 20060501, end: 20170109
  2. ARMOUR THYROID [Concomitant]
     Active Substance: THYROID, PORCINE
  3. CLONAZEPAM. [Suspect]
     Active Substance: CLONAZEPAM
     Indication: INSOMNIA
     Dosage: ?          OTHER STRENGTH:MG;QUANTITY:4 TABLET(S);?
     Route: 048
     Dates: start: 20060501, end: 20170109

REACTIONS (17)
  - Insomnia [None]
  - Dyspepsia [None]
  - Influenza like illness [None]
  - Panic attack [None]
  - Restlessness [None]
  - Myalgia [None]
  - Depression [None]
  - Anxiety [None]
  - Paranoia [None]
  - Emotional distress [None]
  - Dizziness [None]
  - Cognitive disorder [None]
  - Suicidal ideation [None]
  - Decreased appetite [None]
  - Arthralgia [None]
  - Fatigue [None]
  - Withdrawal syndrome [None]

NARRATIVE: CASE EVENT DATE: 20110201
